FAERS Safety Report 8357219-7 (Version None)
Quarter: 2012Q2

REPORT INFORMATION
  Report Type: 
  Country: None (occurrence: None)
  Receive Date: 20120514
  Receipt Date: 20120501
  Transmission Date: 20120825
  Serious: Yes (Death, Hospitalization, Other)
  Sender: FDA-Public Use
  Company Number: US-ELI_LILLY_AND_COMPANY-US201203004924

PATIENT
  Age: 73 Year
  Sex: Female

DRUGS (19)
  1. ZOLOFT [Concomitant]
  2. ASPIRIN [Concomitant]
  3. AMLODIPINE BESYLATE [Concomitant]
  4. DOCUSATE SODIUM [Concomitant]
  5. LEVOTHYROXINE SODIUM [Concomitant]
  6. CYMBALTA [Suspect]
     Indication: DEPRESSION
     Dosage: 60 MG, QD
     Dates: start: 20120201, end: 20120301
  7. ZYPREXA [Suspect]
     Dosage: 10 MG, QD
  8. CATAPRES                                /UNK/ [Concomitant]
  9. LABETALOL HCL [Concomitant]
  10. LORTAB [Concomitant]
  11. BETOPTIC [Concomitant]
  12. FAMOTIDINE [Concomitant]
  13. ABILIFY [Concomitant]
  14. CARDIOVASCULAR SYSTEM DRUGS [Concomitant]
  15. ALBUTEROL SULFATE [Concomitant]
  16. FRAGMIN [Concomitant]
  17. ACETAMINOPHEN [Concomitant]
  18. ARICEPT [Concomitant]
  19. IRON [Concomitant]

REACTIONS (7)
  - CONFUSIONAL STATE [None]
  - DEATH [None]
  - ALTERED STATE OF CONSCIOUSNESS [None]
  - WOUND [None]
  - HALLUCINATION [None]
  - GANGRENE [None]
  - LEG AMPUTATION [None]
